FAERS Safety Report 8833059 (Version 1)
Quarter: 2012Q4

REPORT INFORMATION
  Report Type: Spontaneous
  Country: HK (occurrence: None)
  Receive Date: 20121005
  Receipt Date: 20121005
  Transmission Date: 20130627
  Serious: Yes (Hospitalization)
  Sender: FDA-Public Use
  Company Number: 2012P1059878

PATIENT
  Age: 49 Year
  Sex: Male

DRUGS (9)
  1. LITHIUM [Suspect]
     Indication: BIPOLAR AFFECTIVE DISORDER
     Dosage: AM
  2. LITHIUM [Suspect]
     Indication: BIPOLAR AFFECTIVE DISORDER
  3. TRIFLUOPERAZINE [Concomitant]
  4. TRIHEXYPHENIDYL [Concomitant]
  5. ASPIRIN [Concomitant]
  6. ACERTIL [Concomitant]
  7. CARVEDILOL [Concomitant]
  8. FUROSEMIDE [Concomitant]
  9. ALDACTONE [Concomitant]

REACTIONS (10)
  - Toxicity to various agents [None]
  - Neuropathy peripheral [None]
  - Metabolic encephalopathy [None]
  - Hypotonia [None]
  - General physical health deterioration [None]
  - Antipsychotic drug level above therapeutic [None]
  - Continuous haemodiafiltration [None]
  - Ophthalmoplegia [None]
  - Quadriplegia [None]
  - Coma [None]
